FAERS Safety Report 10213833 (Version 2)
Quarter: 2014Q2

REPORT INFORMATION
  Report Type: Spontaneous
  Country: JP (occurrence: JP)
  Receive Date: 20140603
  Receipt Date: 20140617
  Transmission Date: 20141212
  Serious: Yes (Other)
  Sender: FDA-Public Use
  Company Number: JP-CELGENEUS-087-21880-14055142

PATIENT
  Age: 84 Year
  Sex: 0

DRUGS (7)
  1. REVLIMID [Suspect]
     Indication: PLASMA CELL MYELOMA
     Dosage: 5 MILLIGRAM
     Route: 048
     Dates: start: 20121206, end: 20130319
  2. REVLIMID [Suspect]
     Dosage: 5 MILLIGRAM
     Route: 048
     Dates: start: 20130403, end: 20131023
  3. LENADEX [Suspect]
     Indication: PLASMA CELL MYELOMA
     Route: 048
     Dates: start: 20101007, end: 20131017
  4. LENADEX [Suspect]
     Route: 048
     Dates: start: 201212, end: 201311
  5. BORTEZOMIB [Concomitant]
     Indication: PLASMA CELL MYELOMA
     Dosage: 1.5 MILLIGRAM
     Route: 065
     Dates: start: 201010
  6. BORTEZOMIB [Concomitant]
     Dosage: 1.5 MILLIGRAM
     Route: 065
     Dates: start: 201212
  7. BORTEZOMIB [Concomitant]
     Dosage: 1.5 MILLIGRAM
     Route: 065
     Dates: start: 201304, end: 201311

REACTIONS (2)
  - Pneumonia aspiration [Unknown]
  - Somnolence [Recovered/Resolved]
